FAERS Safety Report 4706526-5 (Version None)
Quarter: 2005Q2

REPORT INFORMATION
  Report Type: 
  Country: None (occurrence: None)
  Receive Date: 20050114
  Receipt Date: 20050114
  Transmission Date: 20051028
  Serious: No
  Sender: FDA-Public Use
  Company Number: None

PATIENT
  Sex: Female
  Weight: 192.3251 kg

DRUGS (1)
  1. LASIX [Suspect]
     Indication: HYPERTENSION
     Dosage: 40MG ONE Q D PO
     Route: 048

REACTIONS (1)
  - RASH [None]
